FAERS Safety Report 20780252 (Version 2)
Quarter: 2022Q2

REPORT INFORMATION
  Report Type: Spontaneous
  Country: US (occurrence: US)
  Receive Date: 20220503
  Receipt Date: 20220606
  Transmission Date: 20220721
  Serious: Yes (Other)
  Sender: FDA-Public Use
  Company Number: US-PFIZER INC-202200561284

PATIENT
  Age: 67 Year
  Sex: Female

DRUGS (1)
  1. PAXLOVID [Suspect]
     Active Substance: NIRMATRELVIR\RITONAVIR
     Indication: COVID-19 treatment
     Dosage: [PF-07321332 300 MG]/[RITONAVIR 100 MG]; 2X/DAY

REACTIONS (11)
  - Nasal congestion [Recovering/Resolving]
  - Respiratory tract congestion [Unknown]
  - Upper respiratory tract congestion [Unknown]
  - Cough [Recovering/Resolving]
  - Dysgeusia [Unknown]
  - Diarrhoea [Unknown]
  - Myalgia [Unknown]
  - Chest discomfort [Unknown]
  - Hypertension [Unknown]
  - Rhinitis [Unknown]
  - Hypersensitivity [Unknown]

NARRATIVE: CASE EVENT DATE: 20220416
